FAERS Safety Report 20151339 (Version 1)
Quarter: 2021Q4

REPORT INFORMATION
  Report Type: Spontaneous
  Country: US (occurrence: US)
  Receive Date: 20211206
  Receipt Date: 20211206
  Transmission Date: 20220303
  Serious: No
  Sender: FDA-Public Use
  Company Number: US-GW PHARMA-202111USGW05940

PATIENT

DRUGS (2)
  1. EPIDIOLEX [Suspect]
     Active Substance: CANNABIDIOL
     Indication: Lennox-Gastaut syndrome
     Dosage: 240 MILLIGRAM, QD (90 MG IN THE MORNING AND 150 MG AT BEDTIME)
     Route: 048
     Dates: start: 20200901
  2. EPIDIOLEX [Suspect]
     Active Substance: CANNABIDIOL
     Dosage: 200 MILLIGRAM, BID
     Route: 048

REACTIONS (2)
  - Weight increased [Unknown]
  - Urinary tract infection [Unknown]
